FAERS Safety Report 9396206 (Version 2)
Quarter: 2013Q3

REPORT INFORMATION
  Report Type: Spontaneous
  Country: BR (occurrence: BR)
  Receive Date: 20130711
  Receipt Date: 20130717
  Transmission Date: 20140515
  Serious: Yes (Life-Threatening, Hospitalization)
  Sender: FDA-Public Use
  Company Number: CHNY2013BR001442

PATIENT
  Age: 40 Year
  Sex: Male

DRUGS (1)
  1. CIBALENA [Suspect]
     Dosage: UNK, UNK

REACTIONS (4)
  - Hallucination [Unknown]
  - Drug dependence [Unknown]
  - Drug ineffective for unapproved indication [Unknown]
  - Wrong technique in drug usage process [Unknown]
